FAERS Safety Report 5520509-7 (Version None)
Quarter: 2007Q4

REPORT INFORMATION
  Report Type: 
  Country: None (occurrence: None)
  Receive Date: 20071119
  Receipt Date: 20071112
  Transmission Date: 20080405
  Serious: Yes (Death, Other)
  Sender: FDA-Public Use
  Company Number: US-PFIZER INC-2007046816

PATIENT
  Sex: Female
  Weight: 113 kg

DRUGS (1)
  1. BEXTRA [Suspect]
     Indication: CARPAL TUNNEL SYNDROME
     Route: 048
     Dates: start: 20010101, end: 20040501

REACTIONS (4)
  - ORGAN FAILURE [None]
  - RUPTURED CEREBRAL ANEURYSM [None]
  - STEVENS-JOHNSON SYNDROME [None]
  - THROMBOSIS [None]
